FAERS Safety Report 18606117 (Version 1)
Quarter: 2020Q4

REPORT INFORMATION
  Report Type: Spontaneous
  Country: US (occurrence: US)
  Receive Date: 20201211
  Receipt Date: 20201211
  Transmission Date: 20210114
  Serious: No
  Sender: FDA-Public Use
  Company Number: US-PFIZER INC-2020487545

PATIENT
  Age: 51 Year
  Sex: Female

DRUGS (1)
  1. PANTOMED (PANTOPRAZOLE) [Suspect]
     Active Substance: PANTOPRAZOLE
     Indication: SHORT-BOWEL SYNDROME
     Dosage: 40 MILLIGRAM, BID
     Route: 048

REACTIONS (2)
  - Back pain [Unknown]
  - Off label use [Unknown]
